FAERS Safety Report 4351046-3 (Version None)
Quarter: 2004Q2

REPORT INFORMATION
  Report Type: 
  Country: None (occurrence: None)
  Receive Date: 20040427
  Receipt Date: 20040412
  Transmission Date: 20050107
  Serious: Yes (Hospitalization)
  Sender: FDA-Public Use
  Company Number: 2004AP02223

PATIENT
  Age: 68 Year
  Sex: Male

DRUGS (15)
  1. IRESSA [Suspect]
     Indication: LUNG NEOPLASM MALIGNANT
     Dosage: 250 MG DAILY PO
     Route: 048
     Dates: start: 20040309, end: 20040318
  2. IRESSA [Suspect]
     Indication: LUNG NEOPLASM MALIGNANT
     Dosage: 250 MG DAILY ORAL
     Route: 048
     Dates: start: 20040322
  3. DUROTEP JANSSEN [Concomitant]
  4. MEVALOTIN [Concomitant]
  5. ASPIRIN [Concomitant]
  6. LASIX [Concomitant]
  7. PURSENNID [Concomitant]
  8. DIPYRIDAMOLE [Concomitant]
  9. NO MATCH [Concomitant]
  10. LOXONIN [Concomitant]
  11. SELBEX [Concomitant]
  12. CARBOPLATIN [Concomitant]
  13. PACLITAXEL [Concomitant]
  14. DOCETAEL [Concomitant]
  15. NEUTROGEN [Concomitant]

REACTIONS (3)
  - HAEMATOTOXICITY [None]
  - NEUTROPENIA [None]
  - WHITE BLOOD CELL COUNT DECREASED [None]
